FAERS Safety Report 6480391-0 (Version None)
Quarter: 2009Q4

REPORT INFORMATION
  Report Type: 
  Country: None (occurrence: None)
  Receive Date: 20091125
  Receipt Date: 20091117
  Transmission Date: 20100525
  Serious: Yes (Hospitalization)
  Sender: FDA-Public Use
  Company Number: 2009SP036733

PATIENT
  Sex: Female

DRUGS (1)
  1. TICE BCG [Suspect]
     Indication: BLADDER CANCER
     Dosage: ; QW;
     Dates: start: 20091001

REACTIONS (6)
  - BLADDER DISCOMFORT [None]
  - BLADDER PAIN [None]
  - BLOOD URINE PRESENT [None]
  - BOVINE TUBERCULOSIS [None]
  - PNEUMONIA [None]
  - SEPSIS [None]
